FAERS Safety Report 7497713-4 (Version None)
Quarter: 2011Q2

REPORT INFORMATION
  Report Type: 
  Country: None (occurrence: None)
  Receive Date: 20110523
  Receipt Date: 20110513
  Transmission Date: 20111010
  Serious: Yes (Hospitalization)
  Sender: FDA-Public Use
  Company Number: PHHY2011GB40535

PATIENT
  Sex: Female

DRUGS (9)
  1. WARFARIN SODIUM [Suspect]
     Dates: end: 20110309
  2. ZOPICLONE [Concomitant]
     Dosage: 3.75 MG, UNK
  3. AMIODARONE HCL [Concomitant]
     Dosage: 200 MG, QD
     Route: 048
  4. LOSARTAN [Concomitant]
     Dosage: 50 MG, QD
     Route: 048
  5. PENICILLIN [Interacting]
  6. BISOPROLOL FUMARATE [Concomitant]
     Dosage: 10 MG, QD
     Route: 048
  7. DIGOXIN [Interacting]
     Dosage: 125 UG, QD
     Route: 048
  8. FUROSEMIDE [Concomitant]
     Dosage: 40 MG, QD
     Route: 048
  9. ROSUVASTATIN [Concomitant]
     Dosage: 20 MG, QD

REACTIONS (6)
  - CONTUSION [None]
  - DRUG INTERACTION [None]
  - OEDEMA [None]
  - INTERNATIONAL NORMALISED RATIO INCREASED [None]
  - CARDIAC FAILURE CHRONIC [None]
  - VISION BLURRED [None]
